FAERS Safety Report 19008133 (Version 1)
Quarter: 2021Q1

REPORT INFORMATION
  Report Type: Spontaneous
  Country: TR (occurrence: TR)
  Receive Date: 20210316
  Receipt Date: 20210316
  Transmission Date: 20210420
  Serious: Yes (Other)
  Sender: FDA-Public Use
  Company Number: TR-CELLTRION INC.-2021TR002880

PATIENT

DRUGS (2)
  1. INFLIXIMAB (UNKNOWN) [Suspect]
     Active Substance: INFLIXIMAB
     Indication: JUVENILE IDIOPATHIC ARTHRITIS
     Dosage: MEAN INDUCTION DOSAGE OF 5.74 +/? 2.7 MG/KG (MEDIAN=5 MG/KG) DOSED EVERY FOUR WEEKS THEREAFTER
  2. INFLIXIMAB (UNKNOWN) [Suspect]
     Active Substance: INFLIXIMAB
     Indication: UVEITIS
     Dosage: MEAN INDUCTION DOSAGE OF 5.74 +/? 2.7 MG/KG (MEDIAN=5 MG/KG) DOSED EVERY TWO WEEKS FOR THE FIRST FOU

REACTIONS (3)
  - Drug effective for unapproved indication [Unknown]
  - Off label use [Unknown]
  - Uveitis [Unknown]
